FAERS Safety Report 7962338-0 (Version None)
Quarter: 2011Q4

REPORT INFORMATION
  Report Type: 
  Country: None (occurrence: None)
  Receive Date: 20111207
  Receipt Date: 20111202
  Transmission Date: 20120403
  Serious: Yes (Hospitalization)
  Sender: FDA-Public Use
  Company Number: DE-MERCK-1111DEU00084

PATIENT
  Age: 62 Year
  Sex: Male
  Weight: 95 kg

DRUGS (10)
  1. DOXAZOSIN MESYLATE [Concomitant]
     Route: 048
  2. RAMIPRIL [Concomitant]
     Route: 048
  3. ASPIRIN [Concomitant]
     Route: 048
  4. PANTOPRAZOLE [Concomitant]
     Route: 048
  5. METOPROLOL [Concomitant]
     Route: 048
  6. AMLODIPINE [Concomitant]
     Route: 048
  7. FUROSEMIDE [Concomitant]
     Route: 048
  8. JANUMET [Suspect]
     Indication: TYPE 2 DIABETES MELLITUS
     Route: 048
     Dates: start: 20110101
  9. METFORMIN HCL [Suspect]
     Indication: TYPE 2 DIABETES MELLITUS
     Route: 048
     Dates: start: 20110202, end: 20110101
  10. AMILORIDE HCL AND HYDROCHLOROTHIAZIDE [Suspect]
     Route: 048

REACTIONS (12)
  - GASTROOESOPHAGEAL REFLUX DISEASE [None]
  - HEADACHE [None]
  - STASIS DERMATITIS [None]
  - WEIGHT INCREASED [None]
  - DIABETIC NEPHROPATHY [None]
  - PYREXIA [None]
  - THROMBOCYTOSIS [None]
  - HYPONATRAEMIA [None]
  - DYSPNOEA [None]
  - HYPERTENSIVE CRISIS [None]
  - MELANOCYTIC NAEVUS [None]
  - OEDEMA [None]
